FAERS Safety Report 25307454 (Version 1)
Quarter: 2025Q2

REPORT INFORMATION
  Report Type: Spontaneous
  Country: US (occurrence: US)
  Receive Date: 20250513
  Receipt Date: 20250513
  Transmission Date: 20250716
  Serious: Yes (Other)
  Sender: PFIZER
  Company Number: US-MLMSERVICE-20250430-PI494899-00077-2

PATIENT
  Age: 86 Year
  Sex: Male

DRUGS (3)
  1. OXALIPLATIN [Suspect]
     Active Substance: OXALIPLATIN
     Indication: Colorectal cancer metastatic
  2. CAPECITABINE [Suspect]
     Active Substance: CAPECITABINE
     Indication: Colorectal cancer metastatic
  3. PREDNISONE [Concomitant]
     Active Substance: PREDNISONE
     Indication: Seronegative arthritis
     Dosage: 15 MG, DAILY

REACTIONS (1)
  - Neuropathy peripheral [Unknown]
